FAERS Safety Report 6855211-2 (Version None)
Quarter: 2010Q3

REPORT INFORMATION
  Report Type: 
  Country: None (occurrence: None)
  Receive Date: 20100718
  Receipt Date: 20100714
  Transmission Date: 20110219
  Serious: Yes (Congenital Anomaly, Other)
  Sender: FDA-Public Use
  Company Number: NO-BRISTOL-MYERS SQUIBB COMPANY-14982037

PATIENT
  Age: 41 Day
  Sex: Male
  Weight: 2 kg

DRUGS (2)
  1. ATAZANAVIR [Suspect]
     Indication: HIV INFECTION
     Route: 064
  2. ABACAVIR [Suspect]
     Indication: HIV INFECTION
     Route: 064

REACTIONS (6)
  - APLASIA [None]
  - CLEFT LIP AND PALATE [None]
  - CONGENITAL JAW MALFORMATION [None]
  - PREMATURE BABY [None]
  - SYNDACTYLY [None]
  - TALIPES [None]
